FAERS Safety Report 11876714 (Version 1)
Quarter: 2015Q4

REPORT INFORMATION
  Report Type: Spontaneous
  Country: FR (occurrence: FR)
  Receive Date: 20151229
  Receipt Date: 20151229
  Transmission Date: 20160305
  Serious: Yes (Hospitalization)
  Sender: FDA-Public Use
  Company Number: FR-009507513-1512FRA013103

PATIENT
  Age: 33 Year
  Sex: Female

DRUGS (3)
  1. ORGALUTRAN [Suspect]
     Active Substance: GANIRELIX ACETATE
     Dosage: 1 DF, DAILY
     Route: 058
     Dates: start: 20151001, end: 20151011
  2. GONAL-F [Suspect]
     Active Substance: FOLLITROPIN
     Dosage: 150 IU, DAILY
     Route: 058
     Dates: start: 20151001, end: 20151011
  3. OVITRELLE [Suspect]
     Active Substance: CHORIOGONADOTROPIN ALFA
     Dosage: 1 DF, SINGLE INTAKE
     Route: 058
     Dates: start: 20151012

REACTIONS (2)
  - Ovarian hyperstimulation syndrome [Recovered/Resolved]
  - Ascites [Recovered/Resolved]

NARRATIVE: CASE EVENT DATE: 20151027
